FAERS Safety Report 23222773 (Version 1)
Quarter: 2023Q4

REPORT INFORMATION
  Report Type: Spontaneous
  Country: IT (occurrence: IT)
  Receive Date: 20231123
  Receipt Date: 20231123
  Transmission Date: 20240110
  Serious: Yes (Other)
  Sender: FDA-Public Use
  Company Number: None

PATIENT

DRUGS (7)
  1. ONCASPAR [Suspect]
     Active Substance: PEGASPARGASE
     Indication: Acute lymphocytic leukaemia
     Dosage: 1000 IU, UNK
     Route: 042
     Dates: start: 20230921, end: 20231031
  2. CYCLOPHOSPHAMIDE [Concomitant]
     Active Substance: CYCLOPHOSPHAMIDE
     Indication: Acute lymphocytic leukaemia
     Dosage: 400 MG ON DAYS 08/09, 09/09, 10/09, 1940 MG ON DAY 23/10
     Route: 042
     Dates: start: 20230908
  3. IDARUBICIN [Concomitant]
     Active Substance: IDARUBICIN
     Indication: Acute lymphocytic leukaemia
     Dosage: 18 MG ON DAYS 12/09, 13/09 AND 23/10
     Route: 042
     Dates: start: 20230912
  4. VINCRISTINE [Concomitant]
     Active Substance: VINCRISTINE
     Indication: Acute lymphocytic leukaemia
     Dosage: 2 MG ON DAYS 12/09, 19/09, 26/09 AND 3/10
     Route: 042
     Dates: start: 20230912
  5. CYTARABINE [Concomitant]
     Active Substance: CYTARABINE
     Indication: Acute lymphocytic leukaemia
     Dosage: 145,50 MG ON DAYS 24, 25, 26 AND 27 OCT.
     Route: 058
     Dates: start: 20231024
  6. ONDANSETRON HYDROCHLORIDE [Concomitant]
     Active Substance: ONDANSETRON HYDROCHLORIDE
     Indication: Nausea
     Dosage: 8,0 MG ON DAYS 23, 24, 25, 26 AND 27 OCT
     Route: 042
     Dates: start: 20231023
  7. DEXAMETHASONE [Concomitant]
     Active Substance: DEXAMETHASONE
     Indication: Chemotherapy side effect prophylaxis
     Dosage: 9,70 MG TWICE DAILY, ON DAYS 23, 24, 25, 26 AND 27 OCT
     Route: 042
     Dates: start: 20231023

REACTIONS (4)
  - Hypotension [Recovered/Resolved]
  - Vision blurred [Recovered/Resolved]
  - Malaise [Recovered/Resolved]
  - Erythema [Recovered/Resolved]

NARRATIVE: CASE EVENT DATE: 20231031
